FAERS Safety Report 7023633-5 (Version None)
Quarter: 2010Q3

REPORT INFORMATION
  Report Type: 
  Country: None (occurrence: None)
  Receive Date: 20100930
  Receipt Date: 20100930
  Transmission Date: 20110219
  Serious: Yes (Other)
  Sender: FDA-Public Use
  Company Number: None

PATIENT
  Sex: Female
  Weight: 61.4 kg

DRUGS (4)
  1. CRESTOR [Suspect]
     Indication: CORONARY ARTERY BYPASS
     Dosage: CRESTOR 40 MG ONCE A DAY BY MOUTH
     Route: 048
     Dates: end: 20100917
  2. CRESTOR [Suspect]
     Indication: CORONARY ARTERY DISEASE
     Dosage: CRESTOR 40 MG ONCE A DAY BY MOUTH
     Route: 048
     Dates: end: 20100917
  3. CRESTOR [Suspect]
     Indication: CORONARY ARTERY BYPASS
     Dosage: CRESTOR 40 MG ONCE A DAY BY MOUTH
     Route: 048
  4. CRESTOR [Suspect]
     Indication: CORONARY ARTERY DISEASE
     Dosage: CRESTOR 40 MG ONCE A DAY BY MOUTH
     Route: 048

REACTIONS (7)
  - ARTHRALGIA [None]
  - BONE PAIN [None]
  - CHEST PAIN [None]
  - FATIGUE [None]
  - MYALGIA [None]
  - NECK PAIN [None]
  - PAIN IN EXTREMITY [None]
